FAERS Safety Report 21531941 (Version 5)
Quarter: 2025Q3

REPORT INFORMATION
  Report Type: Report from Study
  Country: EU (occurrence: EU)
  Receive Date: 20221101
  Receipt Date: 20250903
  Transmission Date: 20251021
  Serious: Yes (Death, Other)
  Sender: TAKEDA
  Company Number: EU-TAKEDA-2022TUS079694

PATIENT
  Age: 53 Year
  Sex: Male

DRUGS (21)
  1. TEDUGLUTIDE [Suspect]
     Active Substance: TEDUGLUTIDE
     Indication: Short-bowel syndrome
     Dosage: 4.2 MILLIGRAM, QD
     Dates: start: 20150503, end: 202001
  2. TEDUGLUTIDE [Suspect]
     Active Substance: TEDUGLUTIDE
  3. TEDUGLUTIDE [Suspect]
     Active Substance: TEDUGLUTIDE
  4. TEDUGLUTIDE [Suspect]
     Active Substance: TEDUGLUTIDE
  5. NIVOLUMAB [Concomitant]
     Active Substance: NIVOLUMAB
     Indication: Malignant melanoma stage III
     Dosage: 480 MILLIGRAM, MONTHLY
     Dates: start: 20200127, end: 20210118
  6. NIVOLUMAB [Concomitant]
     Active Substance: NIVOLUMAB
     Dosage: 92 MILLIGRAM, MONTHLY
     Dates: start: 20220131, end: 20220314
  7. NIVOLUMAB [Concomitant]
     Active Substance: NIVOLUMAB
     Dosage: 480 MILLIGRAM, MONTHLY
     Dates: start: 202205
  8. OXYCODONE HYDROCHLORIDE [Concomitant]
     Active Substance: OXYCODONE HYDROCHLORIDE
     Indication: Malignant melanoma stage III
  9. INNOHEP [Concomitant]
     Active Substance: TINZAPARIN SODIUM
     Indication: Thrombosis
     Dosage: UNK UNK, SINGLE
     Dates: start: 20220530
  10. .ALPHA.-TOCOPHEROL ACETATE, D- [Concomitant]
     Active Substance: .ALPHA.-TOCOPHEROL ACETATE, D-
     Indication: Vitamin supplementation
     Dosage: 500 MILLIGRAM, QD
  11. OMEPRAZOLE [Concomitant]
     Active Substance: OMEPRAZOLE
     Indication: Gastrooesophageal reflux prophylaxis
     Dosage: 20 MILLIGRAM, BID
  12. URSODIOL [Concomitant]
     Active Substance: URSODIOL
     Indication: Renal lithiasis prophylaxis
     Dosage: UNK UNK, QID
  13. LOPERAMIDE [Concomitant]
     Active Substance: LOPERAMIDE
     Indication: Prophylaxis
     Dosage: UNK UNK, TID
  14. ALFACALCIDOL [Concomitant]
     Active Substance: ALFACALCIDOL
     Indication: Prophylaxis
     Dosage: 1 MICROGRAM, QD
  15. MAGNE B6 [Concomitant]
     Active Substance: MAGNESIUM\PYRIDOXINE
     Indication: Prophylaxis
     Dosage: UNK UNK, QD
  16. WARFARIN SODIUM [Concomitant]
     Active Substance: WARFARIN SODIUM
     Indication: Cardiovascular event prophylaxis
     Dosage: UNK UNK, QD
  17. RAMIPRIL [Concomitant]
     Active Substance: RAMIPRIL
     Indication: Renal failure
     Dosage: 5 MILLIGRAM, QD
  18. SODIUM CHLORIDE [Concomitant]
     Active Substance: SODIUM CHLORIDE
     Indication: Prophylaxis
     Dosage: 8 GRAM, QD
  19. NELVUTAMIG [Concomitant]
     Active Substance: NELVUTAMIG
     Indication: Malignant melanoma stage III
     Dates: start: 20220131, end: 20220314
  20. Seropram [Concomitant]
     Indication: Antidepressant therapy
  21. Seropram [Concomitant]
     Indication: Depression

REACTIONS (1)
  - Metastatic malignant melanoma [Fatal]

NARRATIVE: CASE EVENT DATE: 20190909
